FAERS Safety Report 9754559 (Version 1)
Quarter: 2013Q4

REPORT INFORMATION
  Report Type: Spontaneous
  Country: US (occurrence: US)
  Receive Date: 20131213
  Receipt Date: 20131213
  Transmission Date: 20140711
  Serious: No
  Sender: FDA-Public Use
  Company Number: US-GLAXOSMITHKLINE-A1000736A

PATIENT
  Age: 62 Year
  Sex: Male

DRUGS (1)
  1. WALGREENS NICOTINE TRANSDERMAL SYSTEM PATCH CLEAR, 21MG [Suspect]
     Indication: EX-TOBACCO USER
     Dates: start: 20121103, end: 20121111

REACTIONS (10)
  - Idiosyncratic drug reaction [Recovered/Resolved]
  - Hot flush [Recovered/Resolved]
  - Hyperhidrosis [Recovered/Resolved]
  - Fatigue [Recovered/Resolved]
  - Dizziness [Recovered/Resolved]
  - Dizziness [Recovered/Resolved]
  - Influenza like illness [Recovered/Resolved]
  - Application site urticaria [Not Recovered/Not Resolved]
  - Application site reaction [Not Recovered/Not Resolved]
  - Application site rash [Not Recovered/Not Resolved]
